FAERS Safety Report 9817327 (Version 2)
Quarter: 2014Q1

REPORT INFORMATION
  Report Type: Spontaneous
  Country: US (occurrence: US)
  Receive Date: 20140115
  Receipt Date: 20140224
  Transmission Date: 20141002
  Serious: Yes (Death, Hospitalization, Other)
  Sender: FDA-Public Use
  Company Number: US-AMGEN-USASP2014002432

PATIENT
  Age: 63 Year
  Sex: Female
  Weight: 97.69 kg

DRUGS (28)
  1. PROLIA [Suspect]
     Indication: OSTEOPOROSIS
     Route: 065
  2. TYLENOL                            /00020001/ [Concomitant]
     Dosage: 650 MG, Q6H AS NEEDED
  3. PROVENTIL                          /00139501/ [Concomitant]
     Dosage: UNK UNK, QID
  4. NORVASC [Concomitant]
     Dosage: 10 MG, QD
  5. ASPIRIN [Concomitant]
     Dosage: 81 MG, QD
  6. CIPRO                              /00697201/ [Concomitant]
     Dosage: 500 UNK, BID
  7. DEXTROSE [Concomitant]
  8. COLACE [Concomitant]
     Dosage: 100 MG, BID
  9. FEOSOL [Concomitant]
     Dosage: 325 MG, QD
  10. GLUCAGON [Concomitant]
     Dosage: 16 G, UNK
  11. HUMIBID LA [Concomitant]
     Dosage: 1200 MG, BID
  12. NOVOLOG [Concomitant]
     Dosage: 1 UNIT TO 15 GRAMS OF CARBS
  13. LANTUS [Concomitant]
     Dosage: 8 UNITS, QD
  14. ATROVENT [Concomitant]
     Dosage: UNK UNK, QID
  15. LACTINEX                           /00079701/ [Concomitant]
     Dosage: 2 TABS, BID
  16. PROCARDIA                          /00340701/ [Concomitant]
     Dosage: 90 MG, QD
  17. NYSTATIN [Concomitant]
     Dosage: 4-6 TIMES, QID
  18. ZOFRAN                             /00955301/ [Concomitant]
     Indication: NAUSEA
     Dosage: 4 MG, AS NECESSARY
     Route: 042
  19. PROTONIX [Concomitant]
     Dosage: 40 MG, QD
  20. PREDNISONE [Concomitant]
     Dosage: 10 MG, QD
  21. SENOKOT                            /00142201/ [Concomitant]
     Dosage: 1 TAB, BID
  22. ZOCOR [Concomitant]
     Dosage: 40 MG, QD
  23. RESTORIL                           /00054301/ [Concomitant]
     Dosage: 15 MG, QHS
  24. HUMALOG [Concomitant]
     Dosage: 10, BEFORE MEALS
  25. LEVEMIR [Concomitant]
  26. ALBUTEROL                          /00139501/ [Concomitant]
     Dosage: 2 TO 3 PUFFS, Q4H
  27. AMLODIPINE [Concomitant]
     Dosage: 10 UNK, QD
  28. NIFEDIPINE [Concomitant]
     Dosage: 90 UNK, QD

REACTIONS (16)
  - Coronary artery disease [Fatal]
  - Diabetes mellitus [Fatal]
  - Lobar pneumonia [Unknown]
  - Chronic obstructive pulmonary disease [Unknown]
  - Renal failure acute [Unknown]
  - Renal failure chronic [Unknown]
  - Dysfunctional uterine bleeding [Unknown]
  - Haemorrhagic anaemia [Unknown]
  - Anaemia of chronic disease [Unknown]
  - Vaginal haemorrhage [Unknown]
  - Muscle spasms [Unknown]
  - Haemoglobin abnormal [Unknown]
  - Renal failure [Recovered/Resolved]
  - Bronchitis chronic [Recovered/Resolved]
  - Metabolic acidosis [Unknown]
  - Hypertension [Unknown]
